FAERS Safety Report 9223351 (Version 2)
Quarter: 2013Q2

REPORT INFORMATION
  Report Type: Spontaneous
  Country: US (occurrence: US)
  Receive Date: 20130410
  Receipt Date: 20130418
  Transmission Date: 20140414
  Serious: Yes (Death)
  Sender: FDA-Public Use
  Company Number: US-TEVA-397241USA

PATIENT
  Sex: 0

DRUGS (3)
  1. ACTIQ [Suspect]
     Indication: BREAKTHROUGH PAIN
     Route: 002
  2. TINCTURE OF OPIUM [Concomitant]
     Indication: DIARRHOEA
  3. LOMOTIL [Concomitant]
     Indication: DIARRHOEA
     Dosage: 10 MILLIGRAM DAILY;
     Route: 048

REACTIONS (1)
  - Death [Fatal]
